FAERS Safety Report 8878639 (Version 1)
Quarter: 2012Q4

REPORT INFORMATION
  Report Type: 
  Country: US (occurrence: US)
  Receive Date: 20121025
  Receipt Date: 20121025
  Transmission Date: 20130627
  Serious: No
  Sender: FDA-Public Use
  Company Number: US-AMGEN-USASP2012023473

PATIENT
  Sex: Female

DRUGS (4)
  1. ENBREL [Suspect]
     Indication: PRODUCT USED FOR UNKNOWN INDICATION
     Dosage: 50 mg, qwk
     Route: 058
  2. MELOXICAM [Concomitant]
     Dosage: 15 mg, UNK
  3. PREDNISONE [Concomitant]
     Dosage: 10 mg, UNK
  4. TRAMADOL HCL [Concomitant]
     Dosage: 50 mg, UNK

REACTIONS (5)
  - Hot flush [Unknown]
  - Hyperhidrosis [Unknown]
  - Injection site reaction [Recovered/Resolved]
  - Injection site erythema [Recovered/Resolved]
  - Injection site swelling [Recovered/Resolved]
